FAERS Safety Report 18259593 (Version 1)
Quarter: 2020Q3

REPORT INFORMATION
  Report Type: Spontaneous
  Country: US (occurrence: US)
  Receive Date: 20200911
  Receipt Date: 20200911
  Transmission Date: 20201103
  Serious: No
  Sender: FDA-Public Use
  Company Number: US-BIOMARINAP-US-2020-131846

PATIENT
  Age: 17 Year
  Sex: Male

DRUGS (4)
  1. ALDURAZYME [Suspect]
     Active Substance: LARONIDASE
     Indication: MUCOPOLYSACCHARIDOSIS I
     Dosage: 26.1 MILLIGRAM, QW
     Route: 042
     Dates: start: 20100712
  2. SULFAMETHOXAZOLE;TRIMETHOPRIM [Suspect]
     Active Substance: SULFAMETHOXAZOLE\TRIMETHOPRIM
     Indication: ACNE
     Dosage: UNK UNK, BID
     Route: 065
     Dates: start: 20200808
  3. DIPHENHYDRAMINE. [Concomitant]
     Active Substance: DIPHENHYDRAMINE
     Indication: PRODUCT USED FOR UNKNOWN INDICATION
  4. IBUPROFEN. [Concomitant]
     Active Substance: IBUPROFEN
     Indication: PRODUCT USED FOR UNKNOWN INDICATION

REACTIONS (14)
  - Fatigue [Unknown]
  - Muscle twitching [Unknown]
  - Skin infection [Unknown]
  - Chills [Recovered/Resolved]
  - Headache [Unknown]
  - Drug hypersensitivity [Unknown]
  - Nausea [Unknown]
  - Flushing [Unknown]
  - Condition aggravated [Unknown]
  - Rash [Unknown]
  - Grunting [Unknown]
  - Acne [Unknown]
  - Feeling abnormal [Unknown]
  - Body temperature increased [Recovered/Resolved]

NARRATIVE: CASE EVENT DATE: 20200811
